FAERS Safety Report 25220831 (Version 6)
Quarter: 2025Q3

REPORT INFORMATION
  Report Type: Report from Study
  Country: CN (occurrence: CN)
  Receive Date: 20250421
  Receipt Date: 20250805
  Transmission Date: 20251020
  Serious: Yes (Death, Other)
  Sender: Vantive US Healthcare
  Company Number: CN-VANTIVE-2025VAN001842

PATIENT
  Age: 54 Year
  Sex: Male
  Weight: 70 kg

DRUGS (31)
  1. MAGNESIUM CHLORIDE\POTASSIUM CHLORIDE\SODIUM BICARBONATE\SODIUM CHLORI [Suspect]
     Active Substance: MAGNESIUM CHLORIDE\POTASSIUM CHLORIDE\SODIUM BICARBONATE\SODIUM CHLORIDE\SODIUM PHOSPHATE, DIBASIC
     Indication: Acute kidney injury
     Route: 042
     Dates: start: 20250325, end: 20250328
  2. SODIUM CHLORIDE\SODIUM CITRATE, UNSPECIFIED FORM [Suspect]
     Active Substance: SODIUM CHLORIDE\SODIUM CITRATE, UNSPECIFIED FORM
     Indication: Acute kidney injury
     Route: 042
     Dates: start: 20250325, end: 20250326
  3. SODIUM CHLORIDE\SODIUM CITRATE, UNSPECIFIED FORM [Suspect]
     Active Substance: SODIUM CHLORIDE\SODIUM CITRATE, UNSPECIFIED FORM
     Route: 042
     Dates: start: 20250326, end: 20250327
  4. SODIUM CHLORIDE\SODIUM CITRATE, UNSPECIFIED FORM [Suspect]
     Active Substance: SODIUM CHLORIDE\SODIUM CITRATE, UNSPECIFIED FORM
     Route: 042
     Dates: start: 20250327, end: 20250328
  5. UNSPECIFIED INGREDIENT [Suspect]
     Active Substance: UNSPECIFIED INGREDIENT
     Route: 065
  6. ESOMEPRAZOLE SODIUM [Concomitant]
     Active Substance: ESOMEPRAZOLE SODIUM
     Indication: Pancreatitis acute
     Route: 041
     Dates: start: 20250224
  7. SOMATOSTATIN [Concomitant]
     Active Substance: SOMATOSTATIN
     Indication: Pancreatitis acute
     Route: 041
     Dates: start: 20250224
  8. ULINASTATIN [Concomitant]
     Active Substance: ULINASTATIN
     Indication: Pancreatitis acute
     Route: 041
     Dates: start: 20250225
  9. ACIPIMOX [Concomitant]
     Active Substance: ACIPIMOX
     Indication: Pancreatitis acute
     Route: 048
     Dates: start: 20250312
  10. FENOFIBRATE [Concomitant]
     Active Substance: FENOFIBRATE
     Indication: Pancreatitis acute
     Route: 048
     Dates: start: 20250224
  11. ATORVASTATIN CALCIUM [Concomitant]
     Active Substance: ATORVASTATIN CALCIUM
     Indication: Pancreatitis acute
     Route: 048
     Dates: start: 20250315
  12. AMPHOTERICIN B [Concomitant]
     Active Substance: AMPHOTERICIN B
     Indication: Pneumonia
     Route: 041
     Dates: start: 20250320
  13. COLISTIN [Concomitant]
     Active Substance: COLISTIN
     Indication: Pneumonia
     Route: 041
     Dates: start: 20250320
  14. COLISTIN [Concomitant]
     Active Substance: COLISTIN
     Indication: Abdominal infection
  15. ERAVACYCLINE [Concomitant]
     Active Substance: ERAVACYCLINE
     Indication: Pneumonia
     Route: 041
     Dates: start: 20250320
  16. ERAVACYCLINE [Concomitant]
     Active Substance: ERAVACYCLINE
     Indication: Haematological infection
  17. ERAVACYCLINE [Concomitant]
     Active Substance: ERAVACYCLINE
     Indication: Abdominal infection
  18. MEROPENEM [Concomitant]
     Active Substance: MEROPENEM
     Indication: Anti-infective therapy
     Route: 041
     Dates: start: 20250224
  19. SIVELESTAT SODIUM [Concomitant]
     Active Substance: SIVELESTAT SODIUM
     Indication: Pneumonia
     Route: 041
     Dates: start: 20250228
  20. ISAVUCONAZONIUM SULFATE [Concomitant]
     Active Substance: ISAVUCONAZONIUM SULFATE
     Indication: Pneumonia
     Route: 041
     Dates: start: 20250313
  21. IMIPENEM AND CILASTATIN SODIUM [Concomitant]
     Active Substance: CILASTATIN SODIUM\IMIPENEM
     Indication: Pneumonia
     Route: 041
     Dates: start: 20250316
  22. METRONIDAZOLE\SODIUM CHLORIDE [Concomitant]
     Active Substance: METRONIDAZOLE\SODIUM CHLORIDE
     Indication: Abdominal infection
     Route: 041
     Dates: start: 20250322
  23. NORVANCOMYCIN [Concomitant]
     Active Substance: NORVANCOMYCIN
     Indication: Pneumonia
     Route: 041
     Dates: start: 20250322
  24. NORVANCOMYCIN [Concomitant]
     Active Substance: NORVANCOMYCIN
     Indication: Haematological infection
  25. NOREPINEPHRINE [Concomitant]
     Active Substance: NOREPINEPHRINE
     Indication: Pneumonia
     Route: 041
     Dates: start: 20250324
  26. NOREPINEPHRINE [Concomitant]
     Active Substance: NOREPINEPHRINE
     Indication: Haematological infection
  27. NOREPINEPHRINE [Concomitant]
     Active Substance: NOREPINEPHRINE
     Indication: Abdominal infection
  28. CALCIUM GLUCONATE [Concomitant]
     Active Substance: CALCIUM GLUCONATE
     Indication: Haemofiltration
     Route: 065
     Dates: start: 20250325, end: 20250326
  29. CALCIUM GLUCONATE [Concomitant]
     Active Substance: CALCIUM GLUCONATE
     Route: 065
     Dates: start: 20250326, end: 20250326
  30. CALCIUM GLUCONATE [Concomitant]
     Active Substance: CALCIUM GLUCONATE
     Route: 065
     Dates: start: 20250326, end: 20250328
  31. POTASSIUM CHLORIDE [Concomitant]
     Active Substance: POTASSIUM CHLORIDE
     Indication: Haemofiltration
     Route: 065
     Dates: start: 20250325, end: 20250327

REACTIONS (6)
  - Pancreatitis necrotising [Fatal]
  - Septic shock [Fatal]
  - Hypokalaemia [Unknown]
  - Hyponatraemia [Unknown]
  - Hypocalcaemia [Recovered/Resolved]
  - Metabolic alkalosis [Recovered/Resolved]

NARRATIVE: CASE EVENT DATE: 20250326
